FAERS Safety Report 5583810-7 (Version None)
Quarter: 2008Q1

REPORT INFORMATION
  Report Type: 
  Country: None (occurrence: None)
  Receive Date: 20080108
  Receipt Date: 20080103
  Transmission Date: 20080703
  Serious: Yes (Other)
  Sender: FDA-Public Use
  Company Number: ES-BAYER-200810214GPV

PATIENT
  Age: 53 Year
  Sex: Male

DRUGS (1)
  1. ULTRAVIST 300 MG I/ML (IOPROMIDE) [Suspect]
     Indication: DRUG USE FOR UNKNOWN INDICATION
     Dosage: TOTAL DAILY DOSE: 100 ML
     Route: 042
     Dates: start: 20071025, end: 20071025

REACTIONS (2)
  - BRONCHOSPASM [None]
  - RASH [None]
